FAERS Safety Report 19303390 (Version 2)
Quarter: 2021Q2

REPORT INFORMATION
  Report Type: Spontaneous
  Country: US (occurrence: US)
  Receive Date: 20210525
  Receipt Date: 20210603
  Transmission Date: 20210717
  Serious: No
  Sender: FDA-Public Use
  Company Number: US-MICRO LABS LIMITED-ML2021-01029

PATIENT
  Sex: Female

DRUGS (2)
  1. DORZOLAMIDE HYDROCHLORIDE AND TIMOLO MALEATE OPHTHALMIC SOLUTION USP, [Suspect]
     Active Substance: DORZOLAMIDE\TIMOLOL
     Indication: MACULAR DEGENERATION
     Dosage: STRENGTH: 22.3 MG/6.8 MG PER ML, 1 DROP
     Route: 047
  2. VITAMINS [Concomitant]
     Active Substance: VITAMINS

REACTIONS (3)
  - Product dose omission issue [Unknown]
  - Product container issue [Unknown]
  - Wrong technique in product usage process [Unknown]
